FAERS Safety Report 17742384 (Version 2)
Quarter: 2020Q2

REPORT INFORMATION
  Report Type: Spontaneous
  Country: US (occurrence: US)
  Receive Date: 20200504
  Receipt Date: 20200616
  Transmission Date: 20200714
  Serious: Yes (Other)
  Sender: FDA-Public Use
  Company Number: US-ASTRAZENECA-2020SE57508

PATIENT
  Sex: Female

DRUGS (1)
  1. BYDUREON [Suspect]
     Active Substance: EXENATIDE
     Dosage: 2.0MG UNKNOWN
     Route: 065

REACTIONS (4)
  - Product solubility abnormal [Unknown]
  - Device defective [Unknown]
  - Ovarian cancer [Not Recovered/Not Resolved]
  - Diabetes mellitus [Not Recovered/Not Resolved]
